FAERS Safety Report 8443829-5 (Version None)
Quarter: 2012Q2

REPORT INFORMATION
  Report Type: 
  Country: None (occurrence: None)
  Receive Date: 20120323
  Receipt Date: 20110527
  Transmission Date: 20120825
  Serious: Yes (Other)
  Sender: FDA-Public Use
  Company Number: 163-21880-11060094

PATIENT
  Age: 73 Year
  Sex: Female

DRUGS (6)
  1. OXYCONTIN [Concomitant]
  2. HYDROCODONE/APAP (PROCET /USA/) [Concomitant]
  3. VOLTAREN (ENTERIC-COATED TABLET) [Concomitant]
  4. REVLIMID [Suspect]
     Indication: MULTIPLE MYELOMA
     Dosage: 25 MG, X21 DAYS OFF 7 DAYS, PO
     Route: 048
     Dates: start: 20100911
  5. ATENOLOL [Concomitant]
  6. AUGMENTIN '125' [Concomitant]

REACTIONS (2)
  - SYNCOPE [None]
  - HEART RATE DECREASED [None]
